FAERS Safety Report 8170745-9 (Version None)
Quarter: 2012Q1

REPORT INFORMATION
  Report Type: 
  Country: None (occurrence: None)
  Receive Date: 20120105
  Receipt Date: 20110606
  Transmission Date: 20120608
  Serious: Yes (Other)
  Sender: FDA-Public Use
  Company Number: 2011P1009125

PATIENT
  Sex: Male

DRUGS (1)
  1. PREDNISONE [Suspect]
     Dates: start: 20110501, end: 20110526

REACTIONS (1)
  - PSYCHOTIC DISORDER [None]
